FAERS Safety Report 15673761 (Version 1)
Quarter: 2018Q4

REPORT INFORMATION
  Report Type: Spontaneous
  Country: US (occurrence: US)
  Receive Date: 20181129
  Receipt Date: 20181129
  Transmission Date: 20190205
  Serious: Yes (Other)
  Sender: FDA-Public Use
  Company Number: US-PFIZER INC-2018442355

PATIENT
  Age: 78 Year

DRUGS (2)
  1. VFEND [Suspect]
     Active Substance: VORICONAZOLE
     Dosage: 200 MG, UNK
  2. VFEND [Suspect]
     Active Substance: VORICONAZOLE
     Dosage: 50 MG, UNK

REACTIONS (1)
  - Immunodeficiency [Unknown]
